FAERS Safety Report 4687527-2 (Version None)
Quarter: 2005Q2

REPORT INFORMATION
  Report Type: 
  Country: None (occurrence: None)
  Receive Date: 20050608
  Receipt Date: 20050608
  Transmission Date: 20051028
  Serious: Yes (Other)
  Sender: FDA-Public Use
  Company Number: None

PATIENT
  Age: 51 Year
  Sex: Male
  Weight: 54.2502 kg

DRUGS (8)
  1. PEGASYS [Suspect]
     Indication: HEPATITIS C VIRUS
     Dosage: 180MG    Q WEEK    SUBCUTANEO
     Route: 058
     Dates: start: 20040611, end: 20050204
  2. ACETAMINOPHEN [Concomitant]
  3. CANDESARTAN CILEXETIL [Concomitant]
  4. HYDROCHLOROTHIAZIDE [Concomitant]
  5. HYDROPHILIC OINT [Concomitant]
  6. ADALAT CC [Concomitant]
  7. RIBAVIRIN [Concomitant]
  8. CENTRUM, VIT D [Concomitant]

REACTIONS (1)
  - RETINAL EXUDATES [None]
